FAERS Safety Report 6732458-7 (Version None)
Quarter: 2010Q2

REPORT INFORMATION
  Report Type: 
  Country: None (occurrence: None)
  Receive Date: 20100519
  Receipt Date: 20100510
  Transmission Date: 20101027
  Serious: Yes (Hospitalization)
  Sender: FDA-Public Use
  Company Number: GXKR2010JP05234

PATIENT
  Age: 29 Year
  Sex: Male
  Weight: 71 kg

DRUGS (1)
  1. ZONISAMIDE (NGX) [Suspect]
     Indication: TEMPORAL LOBE EPILEPSY
     Dosage: 300 MG, UNK
     Route: 065

REACTIONS (23)
  - ANURIA [None]
  - BACK PAIN [None]
  - DECREASED APPETITE [None]
  - DERMATITIS BULLOUS [None]
  - DRUG RASH WITH EOSINOPHILIA AND SYSTEMIC SYMPTOMS [None]
  - EOSINOPHILIA [None]
  - FACE OEDEMA [None]
  - HAEMODIALYSIS [None]
  - HEPATOMEGALY [None]
  - HERPES VIRUS INFECTION [None]
  - HYPOGAMMAGLOBULINAEMIA [None]
  - LYMPHADENOPATHY [None]
  - NECK PAIN [None]
  - OROPHARYNGEAL PAIN [None]
  - PERIVASCULAR DERMATITIS [None]
  - PRURITUS [None]
  - PYREXIA [None]
  - RASH [None]
  - RASH PAPULAR [None]
  - RENAL IMPAIRMENT [None]
  - SOMNOLENCE [None]
  - SPLENOMEGALY [None]
  - URINE OUTPUT DECREASED [None]
